FAERS Safety Report 7593015-6 (Version None)
Quarter: 2011Q3

REPORT INFORMATION
  Report Type: 
  Country: None (occurrence: None)
  Receive Date: 20110706
  Receipt Date: 20110627
  Transmission Date: 20111222
  Serious: Yes (Other)
  Sender: FDA-Public Use
  Company Number: JP-GLAXOSMITHKLINE-B0730088A

PATIENT
  Sex: Female

DRUGS (1)
  1. ZANTAC 150 [Suspect]
     Indication: PRODUCT USED FOR UNKNOWN INDICATION
     Route: 048
     Dates: start: 20101201

REACTIONS (7)
  - OCULAR HYPERAEMIA [None]
  - GINGIVAL ERYTHEMA [None]
  - HAEMORRHAGE SUBCUTANEOUS [None]
  - ANAL HAEMORRHAGE [None]
  - METRORRHAGIA [None]
  - ECZEMA [None]
  - DRY SKIN [None]
